FAERS Safety Report 12037116 (Version 2)
Quarter: 2016Q1

REPORT INFORMATION
  Report Type: Spontaneous
  Country: AU (occurrence: AU)
  Receive Date: 20160208
  Receipt Date: 20160215
  Transmission Date: 20160526
  Serious: Yes (Other)
  Sender: FDA-Public Use
  Company Number: AU-ACCORD-037665

PATIENT
  Age: 43 Year
  Sex: Female

DRUGS (1)
  1. LEVETIRACETAM. [Suspect]
     Active Substance: LEVETIRACETAM
     Dosage: INGESTION OF 60-80 G, PATIENT RECEIVED NON MAH DRUG KEPPRA

REACTIONS (6)
  - Hypotension [Recovered/Resolved]
  - Cardiotoxicity [Recovered/Resolved]
  - Oliguria [Recovered/Resolved]
  - Overdose [Recovered/Resolved]
  - Bradycardia [Recovered/Resolved]
  - Depressed level of consciousness [Recovered/Resolved]
